FAERS Safety Report 6240708-9 (Version None)
Quarter: 2009Q2

REPORT INFORMATION
  Report Type: 
  Country: None (occurrence: None)
  Receive Date: 20090623
  Receipt Date: 20090211
  Transmission Date: 20091009
  Serious: No
  Sender: FDA-Public Use
  Company Number: US-ASTRAZENECA-2009UW03981

PATIENT
  Age: 30 Month
  Sex: Male
  Weight: 11.3 kg

DRUGS (4)
  1. PULMICORT RESPULES [Suspect]
     Indication: ASTHMA
     Route: 055
     Dates: start: 20080801
  2. SINGULAIR [Concomitant]
     Dates: start: 20080801
  3. MIRALAX [Concomitant]
  4. VITAMINS [Concomitant]

REACTIONS (1)
  - CONSTIPATION [None]
